FAERS Safety Report 15883810 (Version 1)
Quarter: 2019Q1

REPORT INFORMATION
  Report Type: Spontaneous
  Country: US (occurrence: US)
  Receive Date: 20190104
  Receipt Date: 20190104
  Transmission Date: 20190417
  Serious: Yes (Hospitalization)
  Sender: FDA-Public Use
  Company Number: None

PATIENT
  Age: 68 Year
  Sex: Male
  Weight: 107 kg

DRUGS (1)
  1. CARFILZOMIB [Suspect]
     Active Substance: CARFILZOMIB
     Indication: PLASMA CELL MYELOMA
     Route: 042
     Dates: start: 20180912, end: 20181008

REACTIONS (9)
  - Back pain [None]
  - Pyrexia [None]
  - Adverse drug reaction [None]
  - Tremor [None]
  - Myalgia [None]
  - Tachycardia [None]
  - Headache [None]
  - Confusional state [None]
  - Agitation [None]

NARRATIVE: CASE EVENT DATE: 20180912
